FAERS Safety Report 14630952 (Version 1)
Quarter: 2018Q1

REPORT INFORMATION
  Report Type: Spontaneous
  Country: US (occurrence: US)
  Receive Date: 20180313
  Receipt Date: 20180313
  Transmission Date: 20180509
  Serious: Yes (Other)
  Sender: FDA-Public Use
  Company Number: US-SUPERNUS PHARMACEUTICALS, INC.-2018SUP00062

PATIENT
  Age: 73 Year
  Sex: Female
  Weight: 90.25 kg

DRUGS (17)
  1. BREO ELLIPTA [Concomitant]
     Active Substance: FLUTICASONE FUROATE\VILANTEROL TRIFENATATE
  2. METOPROLOL TARTRATE. [Concomitant]
     Active Substance: METOPROLOL TARTRATE
     Dosage: 50 MG, 2X/DAY
  3. POTASSIUM CHLORIDE ER [Concomitant]
     Active Substance: POTASSIUM CHLORIDE
     Dosage: 10 MEQ, 1X/DAY
  4. EZETIMIBE. [Concomitant]
     Active Substance: EZETIMIBE
     Dosage: 10 MG, 1X/DAY
  5. LEVALBUTEROL. [Concomitant]
     Active Substance: LEVALBUTEROL
     Dosage: UNK, AS NEEDED
  6. SPIRIVA RESPIMAT [Concomitant]
     Active Substance: TIOTROPIUM BROMIDE
     Dosage: UNK, 1X/DAY
  7. TROKENDI XR [Suspect]
     Active Substance: TOPIRAMATE
     Indication: MIGRAINE WITH AURA
     Dosage: UNK, AS DIRECTED
     Dates: start: 20171027, end: 201711
  8. ASPIRIN. [Concomitant]
     Active Substance: ASPIRIN
     Dosage: 81 MG, 1X/DAY
  9. BENADRYL [Concomitant]
     Active Substance: DIPHENHYDRAMINE HYDROCHLORIDE
     Dosage: 50 MG, 1X/DAY
  10. VALSARTAN. [Concomitant]
     Active Substance: VALSARTAN
     Dosage: 160 MG, 2X/DAY
  11. TROKENDI XR [Suspect]
     Active Substance: TOPIRAMATE
     Indication: MIGRAINE WITH AURA
     Dosage: 100 MG, 1X/DAY
     Route: 048
     Dates: start: 201711
  12. ATORVASTATIN [Concomitant]
     Active Substance: ATORVASTATIN
     Dosage: 20 MG, 1X/DAY
  13. VITAMIN D [Concomitant]
     Active Substance: CHOLECALCIFEROL
     Dosage: 2000 UNK, 1X/DAY
  14. XARELTO [Concomitant]
     Active Substance: RIVAROXABAN
     Dosage: 20 MG, 1X/DAY
  15. MIRALAX [Concomitant]
     Active Substance: POLYETHYLENE GLYCOL 3350
  16. TYLENOL EXTRA STRENGTH [Concomitant]
     Active Substance: ACETAMINOPHEN
     Dosage: UNK, 1X/DAY
  17. TROKENDI XR [Suspect]
     Active Substance: TOPIRAMATE
     Dosage: 100 MG, EVERY 48 HOURS
     Route: 048
     Dates: start: 2017

REACTIONS (3)
  - Drug dose omission [Not Recovered/Not Resolved]
  - Retinal detachment [Not Recovered/Not Resolved]
  - Off label use [Not Recovered/Not Resolved]

NARRATIVE: CASE EVENT DATE: 201711
